FAERS Safety Report 4507258-9 (Version None)
Quarter: 2004Q4

REPORT INFORMATION
  Report Type: 
  Country: None (occurrence: None)
  Receive Date: 20041119
  Receipt Date: 20041105
  Transmission Date: 20050328
  Serious: Yes (Death)
  Sender: FDA-Public Use
  Company Number: 2004S1002508

PATIENT
  Age: 32 Year
  Sex: Male

DRUGS (2)
  1. CLOZAPINE [Suspect]
     Indication: SCHIZOAFFECTIVE DISORDER
     Dosage: 100 MG QAM, 300 MG Q4PM + 25 MG Q HS ORAL
     Route: 048
     Dates: start: 20040601, end: 20040701
  2. CLOZAPINE [Suspect]

REACTIONS (1)
  - COMPLETED SUICIDE [None]
